FAERS Safety Report 17734739 (Version 1)
Quarter: 2020Q2

REPORT INFORMATION
  Report Type: Spontaneous
  Country: DK (occurrence: DK)
  Receive Date: 20200501
  Receipt Date: 20200501
  Transmission Date: 20200714
  Serious: Yes (Hospitalization, Other)
  Sender: FDA-Public Use
  Company Number: DK-PFIZER INC-2020167148

PATIENT
  Age: 58 Year
  Sex: Male

DRUGS (2)
  1. FLUCONAZOLE. [Suspect]
     Active Substance: FLUCONAZOLE
     Indication: ORAL FUNGAL INFECTION
     Dosage: UNK
     Dates: start: 20170728
  2. MYCOSTATIN [Concomitant]
     Active Substance: NYSTATIN
     Indication: ORAL FUNGAL INFECTION
     Dosage: UNK
     Route: 048
     Dates: start: 20170728

REACTIONS (4)
  - Visual impairment [Recovered/Resolved]
  - Vomiting [Recovered/Resolved]
  - Dry eye [Not Recovered/Not Resolved]
  - Retinal haemorrhage [Recovered/Resolved]

NARRATIVE: CASE EVENT DATE: 2017
